FAERS Safety Report 7328326-2 (Version None)
Quarter: 2011Q1

REPORT INFORMATION
  Report Type: 
  Country: None (occurrence: None)
  Receive Date: 20110303
  Receipt Date: 20110204
  Transmission Date: 20110831
  Serious: No
  Sender: FDA-Public Use
  Company Number: US-B.I. PHARMACEUTICALS,INC./RIDGEFIELD-2011-BP-03612BP

PATIENT
  Sex: Male

DRUGS (7)
  1. LOTRIL [Concomitant]
     Indication: HYPERTENSION
     Route: 048
  2. PRADAXA [Suspect]
     Indication: ATRIAL FIBRILLATION
     Dosage: 300 MG
     Route: 048
     Dates: start: 20101230
  3. ASA [Concomitant]
     Indication: CEREBROVASCULAR ACCIDENT
     Dosage: 81 MG
     Route: 048
  4. MVI'S [Concomitant]
     Indication: PROPHYLAXIS
     Route: 048
  5. HYDROCHLOROTHIAZIDE [Concomitant]
     Indication: HYPERTENSION
     Dosage: 25 MG
     Route: 048
  6. ATENOLOL [Concomitant]
     Indication: HYPERTENSION
     Dosage: 50 MG
     Route: 048
  7. TRAMADOL HCL [Concomitant]
     Indication: ARTHRALGIA
     Dosage: 50 MG
     Route: 048

REACTIONS (2)
  - CONSTIPATION [None]
  - DYSPEPSIA [None]
